FAERS Safety Report 26200926 (Version 1)
Quarter: 2025Q4

REPORT INFORMATION
  Report Type: Spontaneous
  Country: US (occurrence: US)
  Receive Date: 20251226
  Receipt Date: 20251226
  Transmission Date: 20260118
  Serious: No
  Sender: BRISTOL-MYERS SQUIBB COMPANY
  Company Number: US-BRISTOL-MYERS SQUIBB COMPANY-2025-172806

PATIENT
  Age: 53 Year
  Sex: Male

DRUGS (3)
  1. COBENFY [Suspect]
     Active Substance: TROSPIUM CHLORIDE\XANOMELINE
     Indication: Schizophrenia
     Dosage: BID, 50MG/20MG
     Route: 048
     Dates: start: 20251208, end: 20251220
  2. COBENFY [Suspect]
     Active Substance: TROSPIUM CHLORIDE\XANOMELINE
     Dosage: BID, 100MG/20MG
     Route: 048
  3. COBENFY [Suspect]
     Active Substance: TROSPIUM CHLORIDE\XANOMELINE
     Dosage: BID, 125MG/30MG
     Route: 048

REACTIONS (2)
  - Feeling abnormal [Recovered/Resolved]
  - Laziness [Recovered/Resolved]

NARRATIVE: CASE EVENT DATE: 20251208
